FAERS Safety Report 20990729 (Version 2)
Quarter: 2022Q3

REPORT INFORMATION
  Report Type: Spontaneous
  Country: US (occurrence: US)
  Receive Date: 20220622
  Receipt Date: 20220808
  Transmission Date: 20221027
  Serious: No
  Sender: FDA-Public Use
  Company Number: US-BRISTOL-MYERS SQUIBB COMPANY-2022-048295

PATIENT
  Age: 37 Year
  Sex: Female

DRUGS (1)
  1. THALOMID [Suspect]
     Active Substance: THALIDOMIDE
     Indication: Aphthous ulcer
     Route: 048
     Dates: start: 20170617

REACTIONS (4)
  - Product dose omission in error [Unknown]
  - Skin lesion [Not Recovered/Not Resolved]
  - Stomatitis [Not Recovered/Not Resolved]
  - Intentional product use issue [Unknown]

NARRATIVE: CASE EVENT DATE: 20220511
